FAERS Safety Report 10230661 (Version 1)
Quarter: 2014Q2

REPORT INFORMATION
  Report Type: Report from Study
  Country: US (occurrence: US)
  Receive Date: 20140611
  Receipt Date: 20140611
  Transmission Date: 20141212
  Serious: Yes (Other)
  Sender: FDA-Public Use
  Company Number: US-ABBVIE-14P-163-1245119-00

PATIENT
  Age: 35 Year
  Sex: Female
  Weight: 84.44 kg

DRUGS (3)
  1. LUPANETA PACK [Suspect]
     Indication: ENDOMETRIOSIS
     Dates: start: 20140529, end: 20140529
  2. LUPANETA PACK [Suspect]
     Indication: ENDOMETRIOSIS
     Route: 048
     Dates: start: 20140528
  3. LUPANETA PACK [Suspect]
     Indication: HORMONE REPLACEMENT THERAPY

REACTIONS (4)
  - Pharyngeal oedema [Recovered/Resolved]
  - Generalised erythema [Recovered/Resolved]
  - Hypersensitivity [Recovered/Resolved]
  - Rash generalised [Recovered/Resolved]
